FAERS Safety Report 5302285-6 (Version None)
Quarter: 2007Q2

REPORT INFORMATION
  Report Type: 
  Country: None (occurrence: None)
  Receive Date: 20070419
  Receipt Date: 20070410
  Transmission Date: 20071010
  Serious: Yes (Life-Threatening, Hospitalization)
  Sender: FDA-Public Use
  Company Number: JP-ABBOTT-04P-087-0263350-00

PATIENT
  Sex: Female

DRUGS (8)
  1. VALPROATE SODIUM [Suspect]
     Indication: EPILEPSY
     Route: 048
     Dates: start: 20031203, end: 20040310
  2. ZONISAMIDE [Suspect]
     Indication: EPILEPSY
     Route: 048
     Dates: start: 20031203, end: 20040310
  3. CORTROSYN Z [Concomitant]
     Indication: DRUG USE FOR UNKNOWN INDICATION
     Dates: start: 20040113, end: 20040301
  4. CLARITHROMYCIN [Concomitant]
     Indication: DRUG USE FOR UNKNOWN INDICATION
     Dates: start: 20040113, end: 20040301
  5. LACTOBACILLUS ACIDOPHILUS [Concomitant]
     Indication: DRUG USE FOR UNKNOWN INDICATION
     Dates: start: 20040227, end: 20040505
  6. CARBOCISTEINE [Concomitant]
     Indication: DRUG USE FOR UNKNOWN INDICATION
     Dates: start: 20040229, end: 20040505
  7. BROMHEXINE HYDROCHLORIDE [Concomitant]
     Indication: DRUG USE FOR UNKNOWN INDICATION
     Dates: start: 20040229, end: 20040505
  8. PHENOBARBITAL TAB [Concomitant]
     Indication: EPILEPSY
     Dosage: NOT REPORTED
     Dates: end: 20031201

REACTIONS (4)
  - GENERAL SYMPTOM [None]
  - INTERSTITIAL LUNG DISEASE [None]
  - RESPIRATORY SYNCYTIAL VIRUS INFECTION [None]
  - STRIDOR [None]
